FAERS Safety Report 19098532 (Version 1)
Quarter: 2021Q2

REPORT INFORMATION
  Report Type: Spontaneous
  Country: IT (occurrence: IT)
  Receive Date: 20210406
  Receipt Date: 20210406
  Transmission Date: 20210717
  Serious: Yes (Death, Other)
  Sender: FDA-Public Use
  Company Number: IT-SA-2021SA114145

PATIENT
  Age: 67 Year
  Sex: Female

DRUGS (3)
  1. IRINOTECAN [Suspect]
     Active Substance: IRINOTECAN
     Indication: PANCREATIC CARCINOMA
     Dosage: 120 MG, QCY
     Route: 013
     Dates: start: 20210121, end: 20210310
  2. OXALIPLATIN. [Suspect]
     Active Substance: OXALIPLATIN
     Indication: PANCREATIC CARCINOMA
     Dosage: 68 MG, QCY
     Route: 013
     Dates: start: 20210121, end: 20210310
  3. FLUOROURACIL. [Suspect]
     Active Substance: FLUOROURACIL
     Indication: PANCREATIC CARCINOMA
     Dosage: 1920 MG, QCY
     Route: 013
     Dates: start: 20210121, end: 20210310

REACTIONS (2)
  - Splenic artery thrombosis [Fatal]
  - Pancreatitis necrotising [Fatal]

NARRATIVE: CASE EVENT DATE: 20210314
